FAERS Safety Report 8709029 (Version 2)
Quarter: 2013Q4

REPORT INFORMATION
  Report Type: Spontaneous
  Country: PT (occurrence: PT)
  Receive Date: 20120806
  Receipt Date: 20131105
  Transmission Date: 20140711
  Serious: Yes (Other)
  Sender: FDA-Public Use
  Company Number: PT-009507513-1206USA05086

PATIENT
  Age: 64 Year
  Sex: Female

DRUGS (4)
  1. FOSAVANCE [Suspect]
     Indication: OSTEOPOROSIS
     Dosage: 2800 UNK, UNK
     Route: 048
     Dates: start: 2006, end: 2010
  2. FOSAVANCE [Suspect]
     Indication: OSTEOPENIA
     Dosage: 5600 UNK, UNK
     Route: 048
     Dates: start: 2010
  3. EZETIMIBE [Concomitant]
  4. CALCIUM (UNSPECIFIED) [Concomitant]

REACTIONS (1)
  - Rib fracture [Recovered/Resolved]
